FAERS Safety Report 5124117-1 (Version None)
Quarter: 2006Q4

REPORT INFORMATION
  Report Type: 
  Country: None (occurrence: None)
  Receive Date: 20061010
  Receipt Date: 20060216
  Transmission Date: 20070319
  Serious: Yes (Disabling)
  Sender: FDA-Public Use
  Company Number: US-BRISTOL-MYERS SQUIBB COMPANY-13286570

PATIENT
  Sex: Male

DRUGS (4)
  1. AVAPRO [Suspect]
  2. NORVASC [Concomitant]
  3. CASODEX [Concomitant]
  4. LUPRON [Concomitant]

REACTIONS (1)
  - GOUT [None]
